FAERS Safety Report 15955607 (Version 1)
Quarter: 2019Q1

REPORT INFORMATION
  Report Type: Spontaneous
  Country: US (occurrence: US)
  Receive Date: 20190212
  Receipt Date: 20190212
  Transmission Date: 20190417
  Serious: No
  Sender: FDA-Public Use
  Company Number: None

PATIENT
  Age: 61 Year
  Sex: Female

DRUGS (1)
  1. XIIDRA [Suspect]
     Active Substance: LIFITEGRAST
     Indication: DRY EYE
     Route: 047

REACTIONS (5)
  - Lip swelling [None]
  - Paraesthesia [None]
  - Chapped lips [None]
  - Burning sensation [None]
  - Mastication disorder [None]

NARRATIVE: CASE EVENT DATE: 20180626
